FAERS Safety Report 11393990 (Version 1)
Quarter: 2015Q3

REPORT INFORMATION
  Report Type: Spontaneous
  Country: GB (occurrence: GB)
  Receive Date: 20150819
  Receipt Date: 20150819
  Transmission Date: 20151125
  Serious: Yes (Hospitalization)
  Sender: FDA-Public Use
  Company Number: GB-ACCORD-033001

PATIENT
  Age: 29 Year
  Sex: Male

DRUGS (7)
  1. NAPROXEN. [Concomitant]
     Active Substance: NAPROXEN
     Dosage: TWICE DAILY AS NECESSARY
  2. METHOTREXATE [Suspect]
     Active Substance: METHOTREXATE
     Indication: GUTTATE PSORIASIS
     Route: 048
     Dates: start: 20150707, end: 20150724
  3. DOVOBET [Concomitant]
     Active Substance: BETAMETHASONE\CALCIPOTRIENE
  4. CO-DYDRAMOL [Concomitant]
     Active Substance: ACETAMINOPHEN\DIHYDROCODEINE
  5. CLOBETASOL [Concomitant]
     Active Substance: CLOBETASOL
  6. CETIRIZINE [Concomitant]
     Active Substance: CETIRIZINE HYDROCHLORIDE
     Dosage: AT NIGHT.
  7. CETRABEN [Concomitant]
     Active Substance: PARAFFIN
     Dosage: CETRABEN EMOLLIENT CREAM

REACTIONS (5)
  - Oropharyngeal pain [Recovering/Resolving]
  - Skin plaque [Recovering/Resolving]
  - Skin burning sensation [Recovering/Resolving]
  - Malaise [Recovering/Resolving]
  - Rash pruritic [Recovering/Resolving]

NARRATIVE: CASE EVENT DATE: 20150708
